FAERS Safety Report 5750797-3 (Version None)
Quarter: 2008Q2

REPORT INFORMATION
  Report Type: 
  Country: None (occurrence: None)
  Receive Date: 20080528
  Receipt Date: 20080522
  Transmission Date: 20081010
  Serious: Yes (Life-Threatening, Hospitalization, Disabling)
  Sender: FDA-Public Use
  Company Number: A0699226A

PATIENT
  Age: 61 Year
  Sex: Female

DRUGS (8)
  1. ADVAIR DISKUS 100/50 [Suspect]
     Indication: ASTHMA
     Dosage: 1PUFF TWICE PER DAY
     Route: 055
     Dates: start: 20011213, end: 20020901
  2. SEREVENT [Suspect]
     Indication: ASTHMA
     Dosage: 2PUFF TWICE PER DAY
     Route: 055
     Dates: start: 20010101, end: 20020901
  3. COMBIVENT [Concomitant]
     Dosage: 2PUFF AS REQUIRED
     Route: 055
  4. DURATUSS [Concomitant]
  5. BIAXIN [Concomitant]
  6. PREDNISONE TAB [Concomitant]
  7. UNIPHYL [Concomitant]
     Dosage: 400MG PER DAY
     Route: 048
  8. FLOVENT [Concomitant]
     Dosage: 2PUFF TWICE PER DAY

REACTIONS (7)
  - ASTHMA [None]
  - EMOTIONAL DISTRESS [None]
  - INJURY [None]
  - MENTAL DISORDER [None]
  - PAIN [None]
  - RESPIRATORY DISTRESS [None]
  - STATUS ASTHMATICUS [None]
